FAERS Safety Report 21975063 (Version 1)
Quarter: 2023Q1

REPORT INFORMATION
  Report Type: Other
  Country: SE (occurrence: SE)
  Receive Date: 20230209
  Receipt Date: 20230209
  Transmission Date: 20230417
  Serious: Yes (Life-Threatening, Other)
  Sender: FDA-Public Use
  Company Number: SE-CELLTRION INC.-2023SE002490

PATIENT

DRUGS (10)
  1. INFLIXIMAB [Suspect]
     Active Substance: INFLIXIMAB
     Indication: Crohn^s disease
     Dosage: 300 MG EVERY 6 WEEKS
     Route: 042
     Dates: start: 20220511, end: 20221221
  2. Folacin [Concomitant]
     Dosage: 1 MG 1 MG X1
     Route: 048
     Dates: start: 20210817, end: 20221225
  3. FERINJECT [Concomitant]
     Active Substance: FERRIC CARBOXYMALTOSE
     Dosage: 50 MG FE/ML 1000 MG ? X1
     Route: 042
     Dates: start: 20221223, end: 20221223
  4. Calcichew D3 Citron [Concomitant]
     Dosage: 500MG/400 IE 1X2
     Route: 048
     Dates: start: 20120418, end: 20221225
  5. HYOSCYAMINE SULFATE [Concomitant]
     Active Substance: HYOSCYAMINE SULFATE
     Dosage: 0,2 MG 1VB
     Route: 048
     Dates: start: 20210817, end: 20221225
  6. PREDNISOLONE [Concomitant]
     Active Substance: PREDNISOLONE
     Dosage: 5 MG 8 X 1
     Route: 048
     Dates: start: 20131113, end: 20221225
  7. MYCOSTATIN [Concomitant]
     Active Substance: NYSTATIN
     Dosage: 100000 IU/ML 1 ML X4
     Route: 048
     Dates: start: 20120904, end: 20221225
  8. PENTASA [Concomitant]
     Active Substance: MESALAMINE
     Dosage: 500 MG 500 MG 4 X2.
     Route: 048
     Dates: start: 20080530, end: 20221225
  9. ESOMEPRAZOLE [Concomitant]
     Active Substance: ESOMEPRAZOLE
     Dosage: 20 MG 20 MG X1
     Route: 048
     Dates: start: 20220704, end: 20221225
  10. AZATHIOPRINE [Concomitant]
     Active Substance: AZATHIOPRINE
     Dosage: 25 MG 2+4
     Route: 048
     Dates: start: 20080624, end: 20221225

REACTIONS (3)
  - Necrotising colitis [Not Recovered/Not Resolved]
  - Septic shock [Not Recovered/Not Resolved]
  - Underdose [Unknown]

NARRATIVE: CASE EVENT DATE: 20221225
